FAERS Safety Report 11773296 (Version 1)
Quarter: 2015Q4

REPORT INFORMATION
  Report Type: Spontaneous
  Country: PL (occurrence: PL)
  Receive Date: 20151124
  Receipt Date: 20151124
  Transmission Date: 20160304
  Serious: Yes (Hospitalization)
  Sender: FDA-Public Use
  Company Number: PL-BAYER-2015-466173

PATIENT
  Age: 38 Year
  Sex: Female

DRUGS (6)
  1. ATORVASTATIN [Concomitant]
     Active Substance: ATORVASTATIN
     Dosage: UNK
     Dates: start: 2008
  2. ASPIRIN PROTECT [Suspect]
     Active Substance: ASPIRIN
     Dosage: UNK
     Dates: start: 2008
  3. DALTEPARIN SODIUM [Concomitant]
     Active Substance: DALTEPARIN SODIUM
     Dosage: UNK
     Dates: start: 2008
  4. TICLOPIDINE [Concomitant]
     Active Substance: TICLOPIDINE
     Dosage: UNK
     Dates: start: 2008
  5. PENTASA [Concomitant]
     Active Substance: MESALAMINE
     Dosage: UNK
     Dates: start: 2008
  6. SULPHASALAZINE [Concomitant]
     Active Substance: SULFASALAZINE

REACTIONS (1)
  - Peripheral ischaemia [None]

NARRATIVE: CASE EVENT DATE: 2008
